FAERS Safety Report 22271110 (Version 1)
Quarter: 2023Q2

REPORT INFORMATION
  Report Type: Spontaneous
  Country: US (occurrence: None)
  Receive Date: 20230428
  Receipt Date: 20230428
  Transmission Date: 20230721
  Serious: Yes (Hospitalization)
  Sender: FDA-Public Use
  Company Number: None

PATIENT
  Sex: Female

DRUGS (1)
  1. TOBRAMYCIN INHALATION SOLUTION [Suspect]
     Active Substance: TOBRAMYCIN
     Indication: Bronchiectasis
     Dosage: 300MG ?FREQUENCY: INHALE THE CONTENTS OF 1 AMPULE VIA NEBULIZER TWICE DAILY FOR 14 DAYS ON, THEN 28
     Dates: start: 202303

REACTIONS (1)
  - Bronchiectasis [None]
